APPROVED DRUG PRODUCT: ABILIFY
Active Ingredient: ARIPIPRAZOLE
Strength: 9.75MG/1.3ML (7.5MG/ML)
Dosage Form/Route: INJECTABLE;INTRAMUSCULAR
Application: N021866 | Product #001
Applicant: OTSUKA PHARMACEUTICAL CO LTD
Approved: Sep 20, 2006 | RLD: No | RS: No | Type: DISCN